FAERS Safety Report 17796192 (Version 1)
Quarter: 2020Q2

REPORT INFORMATION
  Report Type: Spontaneous
  Country: GB (occurrence: GB)
  Receive Date: 20200517
  Receipt Date: 20200517
  Transmission Date: 20200714
  Serious: Yes (Hospitalization, Other)
  Sender: FDA-Public Use
  Company Number: NVSC2020GB132854

PATIENT
  Sex: Male

DRUGS (2)
  1. TRAMADOL. [Interacting]
     Active Substance: TRAMADOL
     Indication: PRODUCT USED FOR UNKNOWN INDICATION
     Dosage: UNK
     Route: 065
     Dates: start: 2012, end: 2015
  2. GABAPENTIN. [Suspect]
     Active Substance: GABAPENTIN
     Indication: PRODUCT USED FOR UNKNOWN INDICATION
     Dosage: UNK
     Route: 065
     Dates: start: 2012

REACTIONS (14)
  - Hypertension [Recovering/Resolving]
  - Migraine [Recovering/Resolving]
  - Drug hypersensitivity [Recovering/Resolving]
  - Fatigue [Recovering/Resolving]
  - Confusional state [Recovering/Resolving]
  - Headache [Recovering/Resolving]
  - Loss of consciousness [Recovering/Resolving]
  - Vomiting [Recovering/Resolving]
  - Pain [Recovering/Resolving]
  - Dysphagia [Recovering/Resolving]
  - Cerebrovascular accident [Unknown]
  - Cardiac disorder [Recovering/Resolving]
  - Drug interaction [Unknown]
  - Abnormal loss of weight [Recovering/Resolving]
